FAERS Safety Report 21096443 (Version 1)
Quarter: 2022Q3

REPORT INFORMATION
  Report Type: Spontaneous
  Country: HK (occurrence: HK)
  Receive Date: 20220718
  Receipt Date: 20220718
  Transmission Date: 20221027
  Serious: Yes (Hospitalization)
  Sender: FDA-Public Use
  Company Number: HK-BAYER-2022A094764

PATIENT
  Age: 25 Year
  Sex: Female

DRUGS (1)
  1. YAZ [Suspect]
     Active Substance: DROSPIRENONE\ETHINYL ESTRADIOL
     Dosage: UNK
     Route: 048
     Dates: end: 20220703

REACTIONS (5)
  - Cholelithiasis [None]
  - Hepatic enzyme increased [None]
  - Back pain [None]
  - Abdominal pain upper [None]
  - Therapy interrupted [None]

NARRATIVE: CASE EVENT DATE: 20220704
